FAERS Safety Report 24234348 (Version 1)
Quarter: 2024Q3

REPORT INFORMATION
  Report Type: Spontaneous
  Country: BR (occurrence: BR)
  Receive Date: 20240821
  Receipt Date: 20240821
  Transmission Date: 20241017
  Serious: Yes (Other)
  Sender: ELI LILLY AND CO
  Company Number: BR-ELI_LILLY_AND_COMPANY-BR202408009562

PATIENT
  Age: 70 Year
  Sex: Female

DRUGS (1)
  1. ABEMACICLIB [Suspect]
     Active Substance: ABEMACICLIB
     Indication: Adjuvant therapy
     Dosage: UNK UNK, UNKNOWN
     Route: 065
     Dates: start: 202210, end: 202408

REACTIONS (1)
  - Acute myocardial infarction [Unknown]
